FAERS Safety Report 5311068-2 (Version None)
Quarter: 2007Q2

REPORT INFORMATION
  Report Type: 
  Country: None (occurrence: None)
  Receive Date: 20070423
  Receipt Date: 20070403
  Transmission Date: 20071010
  Serious: Yes (Hospitalization)
  Sender: FDA-Public Use
  Company Number: 16314

PATIENT
  Age: 42 Year
  Sex: Female
  Weight: 54 kg

DRUGS (6)
  1. CARBOPLATIN [Suspect]
     Indication: OVARIAN CANCER
     Dosage: 110 MG DAILY IV
     Route: 042
     Dates: start: 20070305, end: 20070305
  2. ALIZAPRIDE HYDROCHLORIDE [Concomitant]
  3. METHYLPREDNISOLONE 16MG TAB [Concomitant]
  4. DEXCHLORPHENIRAMINE MALEATE [Concomitant]
  5. ONDANSETRON HCL [Concomitant]
  6. DOCETAXEL [Concomitant]

REACTIONS (8)
  - ABDOMINAL PAIN [None]
  - FEELING HOT [None]
  - HYPERHIDROSIS [None]
  - MUSCLE SPASMS [None]
  - PHARYNGOLARYNGEAL PAIN [None]
  - PRURITUS [None]
  - RHINALGIA [None]
  - TACHYCARDIA [None]
